FAERS Safety Report 8186093-7 (Version None)
Quarter: 2012Q1

REPORT INFORMATION
  Report Type: 
  Country: None (occurrence: None)
  Receive Date: 20120306
  Receipt Date: 20120229
  Transmission Date: 20120608
  Serious: No
  Sender: FDA-Public Use
  Company Number: US-BIOGENIDEC-2012BI007605

PATIENT
  Age: 36 Year
  Sex: Female

DRUGS (2)
  1. TYSABRI [Suspect]
     Indication: MULTIPLE SCLEROSIS
     Route: 042
     Dates: start: 20111004
  2. AVONEX [Concomitant]
     Indication: MULTIPLE SCLEROSIS
     Route: 030
     Dates: start: 20070411

REACTIONS (7)
  - GAIT DISTURBANCE [None]
  - CARTILAGE INJURY [None]
  - PAIN IN EXTREMITY [None]
  - MUSCLE STRAIN [None]
  - FATIGUE [None]
  - MULTIPLE ALLERGIES [None]
  - SINUSITIS [None]
